FAERS Safety Report 24268028 (Version 4)
Quarter: 2025Q2

REPORT INFORMATION
  Report Type: Spontaneous
  Country: US (occurrence: US)
  Receive Date: 20240830
  Receipt Date: 20250428
  Transmission Date: 20250716
  Serious: No
  Sender: PFIZER
  Company Number: US-PFIZER INC-PV202400110544

PATIENT
  Age: 57 Year
  Sex: Female
  Weight: 64.399 kg

DRUGS (2)
  1. ESTRING [Suspect]
     Active Substance: ESTRADIOL
     Indication: Atrophic vulvovaginitis
     Dosage: 1 RING, EVERY 3 MONTHS, ABOUT 4 YEARS
     Route: 067
     Dates: start: 2020
  2. ESTRING [Suspect]
     Active Substance: ESTRADIOL
     Indication: Micturition urgency

REACTIONS (2)
  - Therapeutic product effect decreased [Not Recovered/Not Resolved]
  - Device delivery system issue [Not Recovered/Not Resolved]
